FAERS Safety Report 12743549 (Version 1)
Quarter: 2016Q3

REPORT INFORMATION
  Report Type: Spontaneous
  Country: DE (occurrence: DE)
  Receive Date: 20160914
  Receipt Date: 20160914
  Transmission Date: 20161109
  Serious: Yes (Other)
  Sender: FDA-Public Use
  Company Number: DE-EISAI MEDICAL RESEARCH-EC-2016-019692

PATIENT
  Age: 15 Year
  Sex: Male
  Weight: 31 kg

DRUGS (5)
  1. PERAMPANEL [Suspect]
     Active Substance: PERAMPANEL
     Dosage: FYCOMPA
     Route: 048
     Dates: start: 201608
  2. PERAMPANEL [Suspect]
     Active Substance: PERAMPANEL
     Dosage: GENERIC FYCOMPA
     Route: 048
     Dates: start: 201608, end: 201608
  3. CARBAMAZEPIN [Concomitant]
     Active Substance: CARBAMAZEPINE
     Indication: PRODUCT USED FOR UNKNOWN INDICATION
  4. VALPROIC ACID. [Concomitant]
     Active Substance: VALPROIC ACID
     Indication: PRODUCT USED FOR UNKNOWN INDICATION
  5. PERAMPANEL [Suspect]
     Active Substance: PERAMPANEL
     Indication: EPILEPSY
     Dosage: FYCOMPA
     Route: 048
     Dates: end: 201608

REACTIONS (2)
  - Seizure [Recovered/Resolved]
  - Product quality issue [Recovered/Resolved]

NARRATIVE: CASE EVENT DATE: 201608
